FAERS Safety Report 24228239 (Version 4)
Quarter: 2025Q3

REPORT INFORMATION
  Report Type: Spontaneous
  Country: IN (occurrence: IN)
  Receive Date: 20240820
  Receipt Date: 20250721
  Transmission Date: 20251021
  Serious: Yes (Other)
  Sender: PFIZER
  Company Number: IN-PFIZER INC-PV202400093224

PATIENT
  Age: 56 Year
  Sex: Female

DRUGS (5)
  1. LORLATINIB [Suspect]
     Active Substance: LORLATINIB
     Indication: Non-small cell lung cancer
     Dosage: 50 MG, 1X/DAY (1-0-0)
     Route: 048
     Dates: start: 20240715
  2. CALCIUM\CHOLECALCIFEROL [Concomitant]
     Active Substance: CALCIUM\CHOLECALCIFEROL
     Dosage: 500MG 1-0-0 X DAILY AFTER FOOD
  3. D RISE [Concomitant]
  4. TUSQ DX [Concomitant]
     Indication: Cough
  5. ULTRACET [Concomitant]
     Active Substance: ACETAMINOPHEN\TRAMADOL HYDROCHLORIDE
     Indication: Pain

REACTIONS (12)
  - Lipids increased [Unknown]
  - Blood cholesterol increased [Unknown]
  - Blood triglycerides increased [Unknown]
  - Burning sensation [Unknown]
  - Abdominal discomfort [Unknown]
  - Diarrhoea [Unknown]
  - Cough [Unknown]
  - Haemoglobin decreased [Unknown]
  - Back pain [Unknown]
  - Headache [Unknown]
  - Asthenia [Unknown]
  - Obesity [Unknown]

NARRATIVE: CASE EVENT DATE: 20240812
